FAERS Safety Report 20532106 (Version 1)
Quarter: 2022Q1

REPORT INFORMATION
  Report Type: Spontaneous
  Country: US (occurrence: US)
  Receive Date: 20220301
  Receipt Date: 20220301
  Transmission Date: 20220423
  Serious: No
  Sender: FDA-Public Use
  Company Number: US-AMRYT PHARMACEUTICALS DAC-AEGR005261

PATIENT
  Sex: Female
  Weight: 48.98 kg

DRUGS (2)
  1. MYALEPT [Suspect]
     Active Substance: METRELEPTIN
     Indication: Lipodystrophy acquired
     Dosage: 5 MILLIGRAM, QD
     Route: 058
     Dates: start: 20210625, end: 20210726
  2. MYALEPT [Suspect]
     Active Substance: METRELEPTIN
     Dosage: 5 MILLIGRAM, QD
     Route: 058

REACTIONS (2)
  - Nasopharyngitis [Unknown]
  - Injection site bruising [Recovered/Resolved]

NARRATIVE: CASE EVENT DATE: 20210101
